FAERS Safety Report 16685887 (Version 1)
Quarter: 2019Q3

REPORT INFORMATION
  Report Type: Spontaneous
  Country: US (occurrence: US)
  Receive Date: 20190809
  Receipt Date: 20190809
  Transmission Date: 20191004
  Serious: No
  Sender: FDA-Public Use
  Company Number: US-JNJFOC-20190743185

PATIENT
  Sex: Female
  Weight: 68.1 kg

DRUGS (2)
  1. TYLENOL [Suspect]
     Active Substance: ACETAMINOPHEN
     Indication: PAIN IN EXTREMITY
     Dosage: 500 MG IN THE MORNING AND ONE AT NIGHT. TWICE DAILY OR AS NEEDED
     Route: 048
  2. TYLENOL [Suspect]
     Active Substance: ACETAMINOPHEN
     Indication: PAIN IN EXTREMITY
     Dosage: 500 MG IN THE MORNING AND ONE AT NIGHT. TWICE DAILY OR AS NEEDED
     Route: 048

REACTIONS (3)
  - Incorrect dose administered [Unknown]
  - Erythema [Not Recovered/Not Resolved]
  - Rash macular [Not Recovered/Not Resolved]
